FAERS Safety Report 14656311 (Version 2)
Quarter: 2018Q1

REPORT INFORMATION
  Report Type: Spontaneous
  Country: IN (occurrence: IN)
  Receive Date: 20180319
  Receipt Date: 20180319
  Transmission Date: 20180509
  Serious: Yes (Hospitalization, Other)
  Sender: FDA-Public Use
  Company Number: US-AKRON, INC.-2044084

PATIENT
  Age: 23 Year
  Sex: Female
  Weight: 39 kg

DRUGS (1)
  1. CAPASTAT SULFATE [Suspect]
     Active Substance: CAPREOMYCIN SULFATE
     Indication: PULMONARY TUBERCULOSIS
     Route: 030
     Dates: start: 20170817

REACTIONS (4)
  - Vomiting [Recovered/Resolved]
  - Electrocardiogram QT prolonged [Recovered/Resolved]
  - Optic neuritis [Recovering/Resolving]
  - Toxicity to various agents [Recovering/Resolving]

NARRATIVE: CASE EVENT DATE: 20170920
